FAERS Safety Report 21364689 (Version 1)
Quarter: 2022Q3

REPORT INFORMATION
  Report Type: Spontaneous
  Country: US (occurrence: None)
  Receive Date: 20220922
  Receipt Date: 20220922
  Transmission Date: 20221027
  Serious: Yes (Hospitalization, Disabling)
  Sender: FDA-Public Use
  Company Number: None

PATIENT
  Age: 27 Year
  Sex: Male
  Weight: 103.5 kg

DRUGS (1)
  1. BUPROPION [Suspect]
     Active Substance: BUPROPION
     Indication: Attention deficit hyperactivity disorder
     Dates: start: 20220114, end: 20220121

REACTIONS (6)
  - Headache [None]
  - Visual snow syndrome [None]
  - Emotional disorder [None]
  - Apathy [None]
  - Amnesia [None]
  - Depressed level of consciousness [None]

NARRATIVE: CASE EVENT DATE: 20220114
